FAERS Safety Report 20096417 (Version 1)
Quarter: 2021Q4

REPORT INFORMATION
  Report Type: Spontaneous
  Country: US (occurrence: US)
  Receive Date: 20211122
  Receipt Date: 20211122
  Transmission Date: 20220303
  Serious: No
  Sender: FDA-Public Use
  Company Number: US-BAYER-2021A252573

PATIENT

DRUGS (2)
  1. CLARITIN REDITABS [Suspect]
     Active Substance: LORATADINE
     Indication: Hypersensitivity
     Route: 065
  2. MANNITOL [Concomitant]
     Active Substance: MANNITOL

REACTIONS (1)
  - Abdominal pain upper [Unknown]
